FAERS Safety Report 20503650 (Version 1)
Quarter: 2022Q1

REPORT INFORMATION
  Report Type: Spontaneous
  Country: US (occurrence: US)
  Receive Date: 20220222
  Receipt Date: 20220222
  Transmission Date: 20220423
  Serious: Yes (Other)
  Sender: FDA-Public Use
  Company Number: US-GLAXOSMITHKLINE-US2022GSK030936

PATIENT
  Age: 70 Year
  Sex: Male

DRUGS (1)
  1. BELANTAMAB MAFODOTIN [Suspect]
     Active Substance: BELANTAMAB MAFODOTIN
     Indication: Plasma cell myeloma
     Dosage: UNK (INFUSION)

REACTIONS (4)
  - Corneal epithelial microcysts [Recovered/Resolved]
  - Punctate keratitis [Recovered/Resolved]
  - Visual acuity reduced [Recovered/Resolved]
  - Cornea verticillata [Recovered/Resolved]
